FAERS Safety Report 5566909-0 (Version None)
Quarter: 2007Q4

REPORT INFORMATION
  Report Type: 
  Country: None (occurrence: None)
  Receive Date: 20071219
  Receipt Date: 20070112
  Transmission Date: 20080405
  Serious: No
  Sender: FDA-Public Use
  Company Number: US-BRISTOL-MYERS SQUIBB COMPANY-13642020

PATIENT
  Age: 55 Year
  Sex: Female
  Weight: 82 kg

DRUGS (6)
  1. PRAVASTATIN SODIUM [Suspect]
  2. ZETIA [Concomitant]
  3. VERAPMIL [Concomitant]
  4. SYNTHROID [Concomitant]
  5. EFFEXOR [Concomitant]
  6. ALLEGRA [Concomitant]

REACTIONS (3)
  - PRURITUS [None]
  - RASH [None]
  - URTICARIA [None]
